FAERS Safety Report 4628883-0 (Version None)
Quarter: 2005Q2

REPORT INFORMATION
  Report Type: 
  Country: None (occurrence: None)
  Receive Date: 20050406
  Receipt Date: 20050328
  Transmission Date: 20051028
  Serious: Yes (Hospitalization)
  Sender: FDA-Public Use
  Company Number: TPA2005A00225

PATIENT
  Age: 59 Year
  Sex: Female
  Weight: 84.6 kg

DRUGS (15)
  1. PIOGLITAZONE HCL [Suspect]
     Indication: GLUCOSE TOLERANCE IMPAIRED
     Dosage: 1 IN 1 D, PER ORAL
     Route: 048
     Dates: start: 20040610
  2. ZESTRIL [Concomitant]
  3. NORVASC [Concomitant]
  4. HYDROCHLOROTHIAZIDE [Concomitant]
  5. ACETYLSALICYLIC ACID SRT [Concomitant]
  6. ZOCOR [Concomitant]
  7. CYMBALTA (ANTIDEPRESSANTS) [Concomitant]
  8. GLUCOSAMINE/CHONDROITIN (GLUCOSAMINE W/CHONDROITIN) [Concomitant]
  9. CALCIUM WITH VITAMIN D (CALCIUM WITH VITAMIN D) [Concomitant]
  10. WELLBUTRIN [Concomitant]
  11. BIATRIN (ALL OTHER THERAPEUTIC PRODUCTS) [Concomitant]
  12. PREVACID [Concomitant]
  13. CALCIUM CITRATE (CALCIUM CITRATE) [Concomitant]
  14. CENTRUM SENIOR (MULTIVITAMINS) (TABLETS) [Concomitant]
  15. VITAMIN E [Concomitant]

REACTIONS (4)
  - BACK PAIN [None]
  - CHEST PAIN [None]
  - DYSPNOEA EXERTIONAL [None]
  - PLEURITIC PAIN [None]
